APPROVED DRUG PRODUCT: MITOMYCIN
Active Ingredient: MITOMYCIN
Strength: 40MG/VIAL
Dosage Form/Route: INJECTABLE;INJECTION
Application: A064144 | Product #003 | TE Code: AP
Applicant: ACCORD HEALTHCARE INC
Approved: Aug 11, 2009 | RLD: No | RS: Yes | Type: RX